FAERS Safety Report 15111953 (Version 3)
Quarter: 2019Q1

REPORT INFORMATION
  Report Type: Spontaneous
  Country: DE (occurrence: DE)
  Receive Date: 20180705
  Receipt Date: 20190320
  Transmission Date: 20190417
  Serious: Yes (Life-Threatening, Hospitalization, Other)
  Sender: FDA-Public Use
  Company Number: DE-MYLANLABS-2018M1047192

PATIENT
  Sex: Male

DRUGS (18)
  1. METHOTREXATE. [Suspect]
     Active Substance: METHOTREXATE
     Indication: B-CELL LYMPHOMA
     Dosage: 1.5 G, QD (50% DOSE REDUCTION DUE TO GFR INITIAL 58 ML/MIN)
     Route: 042
     Dates: start: 20160112, end: 20160112
  2. PREDNISOLONE. [Suspect]
     Active Substance: PREDNISOLONE
     Indication: B-CELL LYMPHOMA
     Dosage: ON 10/MAR/2016, RECEIVED THE MOST RECENT CYCLE OF CHOP PRIOR TO SAE (5 IN 14 D)
     Route: 048
     Dates: start: 20160203
  3. CIPROFLOXACIN                      /00697202/ [Concomitant]
     Active Substance: CIPROFLOXACIN HYDROCHLORIDE
     Dosage: UNK
     Dates: start: 20160105
  4. ROPINIROLE                         /01242902/ [Concomitant]
     Dosage: UNK
     Dates: start: 20160105
  5. LEVETIRACETAM. [Concomitant]
     Active Substance: LEVETIRACETAM
     Dosage: UNK
     Dates: start: 20160105
  6. RITUXIMAB. [Suspect]
     Active Substance: RITUXIMAB
     Indication: B-CELL LYMPHOMA
     Dosage: ON 14 DAY, MOST RECENT CYCLE NO 3, THE DATE OF MOST RECENT DOSE OF RITUXIMAB 09/MAR/2016
     Route: 042
     Dates: start: 20160125
  7. ACICLOVIR                          /00587302/ [Concomitant]
     Indication: INFECTION PROPHYLAXIS
     Dosage: 400 MILLIGRAM, QD
     Route: 048
     Dates: start: 20160105
  8. AMLODIPINE [Concomitant]
     Active Substance: AMLODIPINE BESYLATE
     Dosage: UNK
     Dates: start: 20160105
  9. METOPROLOL                         /00376902/ [Concomitant]
     Active Substance: METOPROLOL TARTRATE
     Dosage: UNK
     Dates: start: 20160105
  10. LEUCOVORIN                         /00566701/ [Suspect]
     Active Substance: LEUCOVORIN
     Indication: B-CELL LYMPHOMA
     Dosage: 1120 MG, QD,280 MG, QID (30 MG/250 ML, 4 TIMES IN DAY. ON 10/MAR/2016, (250 MG, 1 IN 1 D)
     Route: 042
     Dates: start: 20160114
  11. SULFAMETHOXAZOLE AND TRIMETHOPRIM [Concomitant]
     Active Substance: SULFAMETHOXAZOLE\TRIMETHOPRIM
     Dosage: UNK
     Dates: start: 20160105
  12. SERTRALINE                         /01011402/ [Concomitant]
     Active Substance: SERTRALINE HYDROCHLORIDE
     Dosage: UNK
     Dates: start: 20160105
  13. PEGFILGRASTIM [Suspect]
     Active Substance: PEGFILGRASTIM
     Indication: B-CELL LYMPHOMA
     Dosage: 6 MG, Q2W,6 MG (1 IN 14 D)
     Route: 058
     Dates: start: 20160206
  14. COLECALCIFEROL [Concomitant]
     Active Substance: CHOLECALCIFEROL
     Dosage: UNK
     Dates: start: 20160105
  15. TAMSULOSIN [Suspect]
     Active Substance: TAMSULOSIN
     Dosage: UNK
     Dates: start: 20160105
  16. PANTOPRAZOLE                       /01263204/ [Concomitant]
     Active Substance: PANTOPRAZOLE SODIUM
     Dosage: UNK
     Dates: start: 20160105
  17. DOXORUBICINE                       /00330901/ [Suspect]
     Active Substance: DOXORUBICIN
     Indication: B-CELL LYMPHOMA
     Dosage: 1 DF, Q2W,UNK, Q2WK (ON 10/MAR/2016, RECEIVED THE MOST RECENT CYCLE OF CHOP PRIOR TO SAE (1 IN 14 D)
     Route: 042
     Dates: start: 20160203
  18. VINCRISTINE [Suspect]
     Active Substance: VINCRISTINE
     Indication: B-CELL LYMPHOMA
     Dosage: 3.91 MG, Q2WK
     Route: 042
     Dates: start: 20160203

REACTIONS (4)
  - Pneumonia [Recovered/Resolved]
  - Acute kidney injury [Recovered/Resolved]
  - Urinary tract obstruction [Recovered/Resolved]
  - Urinary tract infection [Recovered/Resolved]

NARRATIVE: CASE EVENT DATE: 20160114
